FAERS Safety Report 9313422 (Version 1)
Quarter: 2013Q2

REPORT INFORMATION
  Report Type: Spontaneous
  Country: US (occurrence: US)
  Receive Date: 20130528
  Receipt Date: 20130528
  Transmission Date: 20140414
  Serious: Yes (Hospitalization)
  Sender: FDA-Public Use
  Company Number: US-ELI_LILLY_AND_COMPANY-US201305005869

PATIENT
  Sex: Female

DRUGS (2)
  1. HUMALOG LISPRO [Suspect]
     Indication: DIABETES MELLITUS
     Dosage: 50 U, TID
  2. LANTUS [Concomitant]

REACTIONS (2)
  - Blood glucose increased [Unknown]
  - Injection site pain [Unknown]
